FAERS Safety Report 16030007 (Version 1)
Quarter: 2019Q2

REPORT INFORMATION
  Report Type: Spontaneous
  Country: US (occurrence: US)
  Receive Date: 20190304
  Receipt Date: 20190304
  Transmission Date: 20190711
  Serious: Yes (Hospitalization)
  Sender: FDA-Public Use
  Company Number: None

PATIENT
  Age: 52 Year
  Sex: Female
  Weight: 109 kg

DRUGS (2)
  1. IPILIMUMSB (YERVOY) [Concomitant]
     Dates: start: 20190115, end: 20190226
  2. OPDIVO [Suspect]
     Active Substance: NIVOLUMAB
     Indication: MALIGNANT MELANOMA
     Dosage: ?          OTHER FREQUENCY:EVERY 3 WEEKS;?
     Route: 042
     Dates: start: 20190115, end: 20190226

REACTIONS (4)
  - Musculoskeletal pain [None]
  - Pain in extremity [None]
  - Pain [None]
  - Back pain [None]

NARRATIVE: CASE EVENT DATE: 20190205
